FAERS Safety Report 6026543-5 (Version None)
Quarter: 2009Q1

REPORT INFORMATION
  Report Type: 
  Country: None (occurrence: None)
  Receive Date: 20090102
  Receipt Date: 20081222
  Transmission Date: 20090719
  Serious: Yes (Hospitalization)
  Sender: FDA-Public Use
  Company Number: BE-PFIZER INC-2008155820

PATIENT

DRUGS (11)
  1. *ERLOTINIB [Suspect]
     Indication: NON-SMALL CELL LUNG CANCER
     Dosage: 150 MG, 1X/DAY
     Route: 048
     Dates: start: 20081120, end: 20081215
  2. BLINDED *PLACEBO [Suspect]
     Indication: NON-SMALL CELL LUNG CANCER
     Dosage: 37.5 MG, 1X/DAY
     Route: 048
     Dates: start: 20081120, end: 20081215
  3. BLINDED SUNITINIB MALATE [Suspect]
     Indication: NON-SMALL CELL LUNG CANCER
     Dosage: 37.5 MG, 1X/DAY
     Route: 048
     Dates: start: 20081120, end: 20081215
  4. ALLOPURINOL [Concomitant]
     Dosage: UNK
     Dates: start: 20040101
  5. SIMVASTATIN [Concomitant]
     Dosage: UNK
     Dates: start: 20040101
  6. REPAGLINIDE [Concomitant]
     Dosage: UNK
     Dates: start: 20080102
  7. NEBIVOLOL [Concomitant]
     Dosage: UNK
     Dates: start: 20040101
  8. TIOTROPIUM [Concomitant]
     Dosage: UNK
     Dates: start: 20070601
  9. ENOXAPARIN SODIUM [Concomitant]
     Dosage: UNK
     Dates: start: 20081113
  10. SERETIDE [Concomitant]
     Dosage: UNK
     Dates: start: 20070601
  11. ALL OTHER THERAPEUTIC PRODUCTS [Concomitant]
     Dosage: UNK
     Dates: start: 20040101, end: 20081214

REACTIONS (1)
  - GENERAL PHYSICAL HEALTH DETERIORATION [None]
